FAERS Safety Report 9477129 (Version 3)
Quarter: 2013Q4

REPORT INFORMATION
  Report Type: Spontaneous
  Country: US (occurrence: US)
  Receive Date: 20130826
  Receipt Date: 20131212
  Transmission Date: 20140711
  Serious: No
  Sender: FDA-Public Use
  Company Number: US-PFIZER INC-2013244400

PATIENT
  Age: 44 Year
  Sex: Male
  Weight: 58.96 kg

DRUGS (1)
  1. CELEBREX [Suspect]
     Indication: JAW DISORDER
     Dosage: UNK
     Dates: start: 201308, end: 201308

REACTIONS (2)
  - Cardiac disorder [Recovered/Resolved]
  - Urticaria [Not Recovered/Not Resolved]
